FAERS Safety Report 16820603 (Version 1)
Quarter: 2019Q3

REPORT INFORMATION
  Report Type: Spontaneous
  Country: FR (occurrence: FR)
  Receive Date: 20190918
  Receipt Date: 20190918
  Transmission Date: 20191005
  Serious: Yes (Other)
  Sender: FDA-Public Use
  Company Number: FR-TEVA-2019-FR-1107552

PATIENT
  Age: 20 Year
  Sex: Male

DRUGS (2)
  1. SPIFEN 400 MG, COMPRIM? PELLICUL? [Suspect]
     Active Substance: IBUPROFEN
     Indication: TONSILLITIS
     Dosage: 400 MG
     Route: 048
     Dates: start: 201902, end: 201902
  2. AMOXICILLIN. [Suspect]
     Active Substance: AMOXICILLIN
     Indication: TONSILLITIS
     Dosage: 1G
     Route: 048
     Dates: start: 201902, end: 201902

REACTIONS (3)
  - Pruritus [Recovered/Resolved]
  - Dyspnoea [Recovered/Resolved]
  - Urticaria [Recovered/Resolved]

NARRATIVE: CASE EVENT DATE: 201902
